FAERS Safety Report 18381061 (Version 1)
Quarter: 2020Q4

REPORT INFORMATION
  Report Type: Spontaneous
  Country: US (occurrence: US)
  Receive Date: 20201014
  Receipt Date: 20201014
  Transmission Date: 20210114
  Serious: Yes (Hospitalization)
  Sender: FDA-Public Use
  Company Number: US-ACCORD-204870

PATIENT
  Age: 45 Year
  Sex: Female
  Weight: 35.38 kg

DRUGS (1)
  1. CLONAZEPAM ACCORD [Suspect]
     Active Substance: CLONAZEPAM
     Indication: ANXIETY
     Dosage: 3 TIMES A DAY
     Route: 048
     Dates: start: 20200503

REACTIONS (6)
  - Product substitution issue [Unknown]
  - Malaise [Unknown]
  - Off label use [Unknown]
  - Loss of consciousness [Unknown]
  - Weight increased [Unknown]
  - Heart rate increased [Unknown]

NARRATIVE: CASE EVENT DATE: 20200503
